FAERS Safety Report 16470356 (Version 1)
Quarter: 2019Q2

REPORT INFORMATION
  Report Type: Spontaneous
  Country: US (occurrence: US)
  Receive Date: 20190624
  Receipt Date: 20190624
  Transmission Date: 20190711
  Serious: No
  Sender: FDA-Public Use
  Company Number: US-BAYER-2019-113754

PATIENT
  Age: 63 Year
  Sex: Female
  Weight: 78 kg

DRUGS (2)
  1. ALEVE PM [Suspect]
     Active Substance: DIPHENHYDRAMINE HYDROCHLORIDE\NAPROXEN SODIUM
     Indication: PAIN
     Dosage: 2 DF
     Route: 048
     Dates: start: 20190610, end: 20190611
  2. ALEVE [Suspect]
     Active Substance: NAPROXEN SODIUM
     Indication: PAIN
     Dosage: 1 DF
     Route: 048
     Dates: start: 20190607, end: 20190607

REACTIONS (4)
  - Chest pain [Recovered/Resolved]
  - Eructation [Recovered/Resolved]
  - Malaise [Recovered/Resolved]
  - Flatulence [Recovered/Resolved]

NARRATIVE: CASE EVENT DATE: 20190607
